FAERS Safety Report 7108198-1 (Version None)
Quarter: 2010Q4

REPORT INFORMATION
  Report Type: 
  Country: None (occurrence: None)
  Receive Date: 20101117
  Receipt Date: 20101110
  Transmission Date: 20110411
  Serious: Yes (Other)
  Sender: FDA-Public Use
  Company Number: JP-JNJFOC-20101104202

PATIENT

DRUGS (1)
  1. FINIBAX [Suspect]
     Indication: ILL-DEFINED DISORDER
     Route: 041

REACTIONS (1)
  - CONVULSION [None]
